FAERS Safety Report 13361937 (Version 1)
Quarter: 2017Q1

REPORT INFORMATION
  Report Type: Spontaneous
  Country: FR (occurrence: FR)
  Receive Date: 20170323
  Receipt Date: 20170323
  Transmission Date: 20170429
  Serious: Yes (Disabling)
  Sender: FDA-Public Use
  Company Number: FR-PACIRA PHARMACEUTICALS, INC.-2017DEPFR00716

PATIENT

DRUGS (16)
  1. ACTISKENAN [Concomitant]
     Active Substance: MORPHINE SULFATE
     Dosage: 10 MG, PRN
     Route: 048
  2. DOLIPRANELIB [Concomitant]
     Dosage: 1 G, PRN
     Route: 048
  3. LAROXYL [Concomitant]
     Active Substance: AMITRIPTYLINE
     Dosage: 40 MG/ML, 10 DROPS AT BEDTIME
     Route: 048
  4. LANSOYL [Concomitant]
     Active Substance: MINERAL OIL
     Dosage: 1 DF TID
     Route: 065
  5. EDUCTYL [Concomitant]
     Active Substance: POTASSIUM BITARTRATE\SODIUM BICARBONATE
     Indication: CONSTIPATION
     Dosage: 1 SUPPOSITORY PRN
     Route: 054
  6. DEPOCYT [Suspect]
     Active Substance: CYTARABINE
     Indication: DIFFUSE LARGE B-CELL LYMPHOMA RECURRENT
     Dosage: 50MG EVERY 15 DAYS
     Route: 037
     Dates: start: 20170119, end: 20170203
  7. VINCRISTINE SULFATE. [Concomitant]
     Active Substance: VINCRISTINE SULFATE
     Route: 065
     Dates: start: 20170119, end: 20170203
  8. SKENAN [Concomitant]
     Active Substance: MORPHINE SULFATE
     Dosage: 60 MG, UNK
     Route: 048
  9. PANTOPRAZOLE [Concomitant]
     Active Substance: PANTOPRAZOLE SODIUM
     Dosage: 40 MG, DAILY
     Route: 048
  10. CRESTOR [Concomitant]
     Active Substance: ROSUVASTATIN CALCIUM
     Dosage: 5 MG, DAILY
     Route: 048
  11. RITUXIMAB [Concomitant]
     Active Substance: RITUXIMAB
     Route: 065
     Dates: start: 20170119, end: 20170203
  12. METHOTREXATE. [Concomitant]
     Active Substance: METHOTREXATE
     Route: 065
     Dates: start: 20170119, end: 20170203
  13. PROCARBAZINE [Concomitant]
     Active Substance: PROCARBAZINE
     Route: 065
     Dates: start: 20170119, end: 20170203
  14. ACIDE FOLIQUE [Concomitant]
     Active Substance: FOLIC ACID
     Route: 065
     Dates: start: 20170119, end: 20170203
  15. LYRICA [Concomitant]
     Active Substance: PREGABALIN
     Dosage: 75 MG, BID
     Route: 048
  16. MOVICOL [Concomitant]
     Active Substance: POLYETHYLENE GLYCOL 3350\POTASSIUM CHLORIDE\SODIUM BICARBONATE\SODIUM CHLORIDE
     Dosage: 2 DF IN THE MORNING
     Route: 065

REACTIONS (2)
  - Cauda equina syndrome [Unknown]
  - Condition aggravated [Unknown]

NARRATIVE: CASE EVENT DATE: 20170208
